FAERS Safety Report 8071289 (Version 2)
Quarter: 2012Q4

REPORT INFORMATION
  Report Type: 
  Country: US (occurrence: US)
  Receive Date: 20110805
  Receipt Date: 20121107
  Transmission Date: 20130627
  Serious: Yes (Other)
  Sender: FDA-Public Use
  Company Number: US-ROCHE-752091

PATIENT
  Sex: Male
  Weight: 69.9 kg

DRUGS (2)
  1. ACCUTANE [Suspect]
     Indication: ACNE
     Route: 065
     Dates: start: 1994, end: 1995
  2. ACCUTANE [Suspect]
     Route: 065
     Dates: start: 19960101, end: 20010101

REACTIONS (7)
  - Gastrointestinal injury [Unknown]
  - Colitis ulcerative [Unknown]
  - Inflammatory bowel disease [Unknown]
  - Intestinal obstruction [Unknown]
  - Depression [Unknown]
  - Suicidal ideation [Unknown]
  - Irritable bowel syndrome [Unknown]
